FAERS Safety Report 9088561 (Version 1)
Quarter: 2013Q1

REPORT INFORMATION
  Report Type: Spontaneous
  Country: US (occurrence: US)
  Receive Date: 20130201
  Receipt Date: 20130201
  Transmission Date: 20140127
  Serious: No
  Sender: FDA-Public Use
  Company Number: US-TEVA-382781USA

PATIENT
  Age: 37 Year
  Sex: Female
  Weight: 61.29 kg

DRUGS (5)
  1. PLAN B ONE-STEP [Suspect]
     Indication: POST COITAL CONTRACEPTION
     Dosage: 1.5 MILLIGRAM DAILY;
     Route: 048
     Dates: start: 20130123, end: 20130123
  2. TRAZODONE [Concomitant]
     Indication: ANTIDEPRESSANT THERAPY
  3. ZANAFLEX [Concomitant]
     Indication: MUSCLE RELAXANT THERAPY
  4. KLONOPIN [Concomitant]
     Indication: ANXIETY
  5. KLONOPIN [Concomitant]
     Indication: MUSCLE RELAXANT THERAPY

REACTIONS (1)
  - Diarrhoea [Recovered/Resolved]
